FAERS Safety Report 24244819 (Version 3)
Quarter: 2024Q3

REPORT INFORMATION
  Report Type: Spontaneous
  Country: US (occurrence: US)
  Receive Date: 20240823
  Receipt Date: 20240913
  Transmission Date: 20241017
  Serious: Yes (Hospitalization, Disabling, Other)
  Sender: BRISTOL MYERS SQUIBB
  Company Number: US-BRISTOL-MYERS SQUIBB COMPANY-2024-129789

PATIENT
  Age: 82 Year
  Sex: Male
  Weight: 82.1 kg

DRUGS (3)
  1. POMALYST [Suspect]
     Active Substance: POMALIDOMIDE
     Indication: Plasma cell myeloma
     Dosage: FREQUENCY: 21
  2. POMALYST [Suspect]
     Active Substance: POMALIDOMIDE
     Dosage: FREQ : DAILY 21 DAYS ON 7 DAYS OFF
     Route: 048
     Dates: start: 202404
  3. POMALYST [Suspect]
     Active Substance: POMALIDOMIDE
     Dosage: FREQ : DAILY 21 DAYS ON 7 DAYS OFF
     Route: 048
     Dates: start: 202409

REACTIONS (6)
  - Eating disorder [Recovering/Resolving]
  - Plasma cell myeloma [Recovering/Resolving]
  - Spinal cord compression [Recovering/Resolving]
  - Weight increased [Unknown]
  - Balance disorder [Unknown]
  - Weight decreased [Unknown]
